FAERS Safety Report 5576251-X (Version None)
Quarter: 2007Q4

REPORT INFORMATION
  Report Type: 
  Country: None (occurrence: None)
  Receive Date: 20071228
  Receipt Date: 20071217
  Transmission Date: 20080405
  Serious: Yes (Other)
  Sender: FDA-Public Use
  Company Number: US-ELI_LILLY_AND_COMPANY-US200712003541

PATIENT
  Sex: Female

DRUGS (10)
  1. STRATTERA [Suspect]
     Indication: POLYNEUROPATHY
     Dosage: 80 MG, DAILY (1/D)
     Dates: start: 20071001, end: 20071201
  2. STRATTERA [Suspect]
     Dosage: 40 MG, UNK
     Dates: start: 20071203, end: 20071201
  3. METHADONE HCL [Concomitant]
     Indication: BACK PAIN
     Dosage: 10 MG, DAILY (1/D)
  4. DICLOFENAC [Concomitant]
     Dosage: 50 MG, 3/D
  5. HYDROXYZINE [Concomitant]
     Dosage: 10 MG, AS NEEDED
  6. KLONOPIN [Concomitant]
     Dosage: 2 MG, EACH EVENING
  7. WELLBUTRIN [Concomitant]
     Dosage: 150 MG, 2/D
  8. VITAMINS [Concomitant]
     Dosage: UNK, UNK
  9. CALCIUM WITH VITAMIN D [Concomitant]
     Dosage: UNK, UNK
  10. OMEGA 3 [Concomitant]
     Dosage: UNK, UNK

REACTIONS (9)
  - ANXIETY [None]
  - CARDIAC MURMUR [None]
  - CHEST PAIN [None]
  - DYSKINESIA [None]
  - FEELING ABNORMAL [None]
  - OSTEOARTHRITIS [None]
  - OSTEOPOROSIS [None]
  - SYNCOPE [None]
  - TREMOR [None]
